FAERS Safety Report 7285440 (Version 3)
Quarter: 2024Q3

REPORT INFORMATION
  Report Type: Spontaneous
  Country: FI (occurrence: FI)
  Receive Date: 20100219
  Receipt Date: 20240712
  Transmission Date: 20241017
  Serious: Yes (Death, Hospitalization, Other)
  Sender: SANOFI AVENTIS
  Company Number: FI-GENZYME-FABR-1001195

PATIENT
  Age: 57 Year
  Sex: Male

DRUGS (7)
  1. FABRAZYME [Suspect]
     Active Substance: AGALSIDASE BETA
     Indication: Fabry^s disease
     Dosage: UNK
     Route: 042
     Dates: start: 20030621, end: 2003
  2. FABRAZYME [Suspect]
     Active Substance: AGALSIDASE BETA
     Dosage: 1 MG/KG
     Route: 042
     Dates: start: 2003, end: 20091002
  3. REPLAGAL [Suspect]
     Active Substance: AGALSIDASE ALFA
     Indication: Fabry^s disease
     Dosage: 14 MG (0.2 MG/KG), QOW
     Route: 042
     Dates: start: 20091001, end: 20091211
  4. CYCLOSPORINE [Concomitant]
     Active Substance: CYCLOSPORINE
     Indication: Immunosuppressant drug therapy
     Dosage: 100MG +75MG DAILY
     Route: 048
     Dates: start: 200006
  5. AZATHIOPRINE [Concomitant]
     Active Substance: AZATHIOPRINE
     Indication: Immunosuppressant drug therapy
     Dosage: 25 MG, 3X/DAY:TID
     Route: 048
     Dates: start: 200006
  6. METOPROLOL TARTRATE [Concomitant]
     Active Substance: METOPROLOL TARTRATE
     Indication: Coronary artery disease
     Dosage: 47.5 MG, 3X/DAY:TID
     Route: 048
     Dates: start: 2002
  7. LESCOL [Concomitant]
     Active Substance: FLUVASTATIN SODIUM
     Dosage: 20 MG, 1X/DAY:QD
     Route: 048
     Dates: start: 200509

REACTIONS (6)
  - Pain [Fatal]
  - Fabry^s disease [Fatal]
  - Abdominal pain upper [Fatal]
  - Condition aggravated [Fatal]
  - Temperature intolerance [Fatal]
  - Lymphoma [Fatal]

NARRATIVE: CASE EVENT DATE: 20090101
